FAERS Safety Report 13851340 (Version 2)
Quarter: 2018Q3

REPORT INFORMATION
  Report Type: Spontaneous
  Country: US (occurrence: US)
  Receive Date: 20170810
  Receipt Date: 20180716
  Transmission Date: 20181010
  Serious: Yes (Other)
  Sender: FDA-Public Use
  Company Number: US-009507513-1707USA006196

PATIENT
  Age: 21 Year
  Sex: Female
  Weight: 52.15 kg

DRUGS (1)
  1. NEXPLANON [Suspect]
     Active Substance: ETONOGESTREL
     Dosage: 1 ROD, EVERY 3 YEARS
     Route: 059
     Dates: start: 201702, end: 20170729

REACTIONS (9)
  - Complication of device removal [Recovered/Resolved]
  - Implant site pain [Unknown]
  - General anaesthesia [Unknown]
  - Device difficult to use [Recovered/Resolved]
  - Device deployment issue [Recovered/Resolved]
  - Headache [Unknown]
  - Complication associated with device [Recovered/Resolved]
  - Loss of consciousness [Unknown]
  - Surgery [Unknown]

NARRATIVE: CASE EVENT DATE: 2017
